FAERS Safety Report 15523788 (Version 1)
Quarter: 2018Q4

REPORT INFORMATION
  Report Type: Spontaneous
  Country: US (occurrence: US)
  Receive Date: 20181015
  Receipt Date: 20181015
  Transmission Date: 20190205
  Serious: Yes (Hospitalization)
  Sender: FDA-Public Use
  Company Number: None

PATIENT
  Age: 63 Year
  Sex: Male

DRUGS (7)
  1. ETODOLAC. [Concomitant]
     Active Substance: ETODOLAC
  2. METOLAZONE. [Concomitant]
     Active Substance: METOLAZONE
  3. FUROSEMIDE. [Concomitant]
     Active Substance: FUROSEMIDE
  4. WARFARIN [Concomitant]
     Active Substance: WARFARIN
  5. CLINDAMYCIN. [Concomitant]
     Active Substance: CLINDAMYCIN
  6. SILDENAFIL 20 MG [Suspect]
     Active Substance: SILDENAFIL
     Indication: PULMONARY HYPERTENSION
     Route: 048
     Dates: start: 20180801
  7. POTASSIUM [Concomitant]
     Active Substance: POTASSIUM

REACTIONS (3)
  - Cellulitis [None]
  - Cardiac failure congestive [None]
  - Cough [None]

NARRATIVE: CASE EVENT DATE: 20181003
